FAERS Safety Report 6170425-5 (Version None)
Quarter: 2009Q2

REPORT INFORMATION
  Report Type: 
  Country: None (occurrence: None)
  Receive Date: 20090428
  Receipt Date: 20090421
  Transmission Date: 20091009
  Serious: Yes (Death, Hospitalization)
  Sender: FDA-Public Use
  Company Number: US-ELI_LILLY_AND_COMPANY-US200904004693

PATIENT
  Sex: Male

DRUGS (9)
  1. HUMALOG [Suspect]
     Indication: TYPE 2 DIABETES MELLITUS
     Dosage: UNK, DAILY (1/D)
  2. HUMALOG [Suspect]
     Dosage: UNK, 3/D
  3. LANTUS [Concomitant]
  4. METFORMIN HCL [Concomitant]
  5. GLIMEPIRIDE [Concomitant]
  6. AZOR [Concomitant]
  7. CELEBREX [Concomitant]
  8. NEXIUM [Concomitant]
  9. MOTRIN [Concomitant]

REACTIONS (11)
  - APPARENT DEATH [None]
  - BLOOD GLUCOSE INCREASED [None]
  - BONE DISORDER [None]
  - DRUG DISPENSING ERROR [None]
  - DYSPEPSIA [None]
  - EXPIRED DRUG ADMINISTERED [None]
  - FEELING ABNORMAL [None]
  - MALAISE [None]
  - MYOCARDIAL INFARCTION [None]
  - ORAL DISCOMFORT [None]
  - ROAD TRAFFIC ACCIDENT [None]
